FAERS Safety Report 18635429 (Version 1)
Quarter: 2020Q4

REPORT INFORMATION
  Report Type: Spontaneous
  Country: US (occurrence: US)
  Receive Date: 20201218
  Receipt Date: 20201218
  Transmission Date: 20210114
  Serious: No
  Sender: FDA-Public Use
  Company Number: US-THERAPEUTICSMD-2020TMD04539

PATIENT
  Sex: Female
  Weight: 85.71 kg

DRUGS (2)
  1. UNSPECIFIED BLOOD PRESSURE MEDICATION [Concomitant]
     Active Substance: UNSPECIFIED INGREDIENT
     Dosage: UNK, 1X/DAY
  2. IMVEXXY [Suspect]
     Active Substance: ESTRADIOL
     Indication: VULVOVAGINAL DRYNESS
     Dosage: 10 ?G, 1X/DAY
     Route: 067

REACTIONS (5)
  - Headache [Not Recovered/Not Resolved]
  - Off label use [Not Recovered/Not Resolved]
  - Breast tenderness [Not Recovered/Not Resolved]
  - Product residue present [Not Recovered/Not Resolved]
  - Vaginal discharge [Not Recovered/Not Resolved]
